FAERS Safety Report 6705710-9 (Version None)
Quarter: 2010Q2

REPORT INFORMATION
  Report Type: 
  Country: None (occurrence: None)
  Receive Date: 20100503
  Receipt Date: 20100420
  Transmission Date: 20101027
  Serious: Yes (Hospitalization, Other)
  Sender: FDA-Public Use
  Company Number: US-BAYER-201014061NA

PATIENT
  Age: 38 Year
  Sex: Female

DRUGS (5)
  1. YASMIN [Suspect]
     Indication: ORAL CONTRACEPTION
     Route: 048
     Dates: start: 20050101, end: 20090101
  2. COUMADIN [Concomitant]
  3. LOVENOX [Concomitant]
  4. ANTIBIOTICS [Concomitant]
  5. ORTHO TRI-CYCLEN [Concomitant]

REACTIONS (3)
  - CHOLECYSTECTOMY [None]
  - HYSTERECTOMY [None]
  - PULMONARY EMBOLISM [None]
